FAERS Safety Report 12552060 (Version 2)
Quarter: 2016Q4

REPORT INFORMATION
  Report Type: Report from Study
  Country: None (occurrence: PR)
  Receive Date: 20160713
  Receipt Date: 20161006
  Transmission Date: 20170207
  Serious: Yes (Hospitalization, Other)
  Sender: FDA-Public Use
  Company Number: PR-ABBVIE-16K-131-1672288-00

PATIENT
  Age: 36 Year
  Sex: Male
  Weight: 78.54 kg

DRUGS (2)
  1. HUMIRA [Suspect]
     Active Substance: ADALIMUMAB
     Indication: CROHN^S DISEASE
     Route: 058
     Dates: start: 200710
  2. HUMIRA [Suspect]
     Active Substance: ADALIMUMAB
     Route: 058
     Dates: start: 201606

REACTIONS (14)
  - Incisional hernia [Unknown]
  - Pleural effusion [Unknown]
  - Hepatic infection [Unknown]
  - Gastrointestinal mucosa hyperaemia [Unknown]
  - Portal vein thrombosis [Recovered/Resolved]
  - Colitis [Unknown]
  - Crohn^s disease [Unknown]
  - Splenic infarction [Unknown]
  - Large intestinal ulcer [Unknown]
  - Portal vein thrombosis [Unknown]
  - Pseudopolyposis [Unknown]
  - Carbon dioxide abnormal [Unknown]
  - Gastrointestinal disorder [Unknown]
  - Atelectasis [Unknown]

NARRATIVE: CASE EVENT DATE: 20160329
